FAERS Safety Report 4795376-X (Version None)
Quarter: 2005Q4

REPORT INFORMATION
  Report Type: 
  Country: None (occurrence: None)
  Receive Date: 20051006
  Receipt Date: 20050921
  Transmission Date: 20060501
  Serious: Yes (Hospitalization)
  Sender: FDA-Public Use
  Company Number: 2005-01993

PATIENT
  Age: 69 Year
  Sex: Female
  Weight: 74 kg

DRUGS (2)
  1. VELCADE [Suspect]
     Indication: BREAST CANCER
     Dosage: 2/WEEK, INTRAVENOUS
     Route: 042
     Dates: start: 20050816, end: 20050916
  2. CAPECITABINE (CAPECITABINE) [Suspect]
     Indication: BREAST CANCER
     Dosage: ORAL
     Route: 048
     Dates: start: 20050816, end: 20050916

REACTIONS (5)
  - ASTHENIA [None]
  - DEHYDRATION [None]
  - DIARRHOEA [None]
  - GAIT DISTURBANCE [None]
  - HYPOKALAEMIA [None]
